FAERS Safety Report 4608954-5 (Version None)
Quarter: 2005Q1

REPORT INFORMATION
  Report Type: 
  Country: None (occurrence: None)
  Receive Date: 20050310
  Receipt Date: 20040810
  Transmission Date: 20050727
  Serious: Yes (Hospitalization)
  Sender: FDA-Public Use
  Company Number: 29114

PATIENT
  Age: 9 Year
  Sex: Female

DRUGS (1)
  1. CYCLOPENTOLATE HCL [Suspect]
     Indication: OPHTHALMOLOGICAL EXAMINATION
     Route: 047
     Dates: start: 20040513, end: 20040513

REACTIONS (9)
  - ABDOMINAL PAIN UPPER [None]
  - BRADYCARDIA [None]
  - DIZZINESS [None]
  - FEELING ABNORMAL [None]
  - GASTROENTERITIS [None]
  - HEADACHE [None]
  - MALAISE [None]
  - MYDRIASIS [None]
  - PALLOR [None]
